FAERS Safety Report 17111156 (Version 1)
Quarter: 2019Q4

REPORT INFORMATION
  Report Type: Spontaneous
  Country: US (occurrence: US)
  Receive Date: 20191203
  Receipt Date: 20191203
  Transmission Date: 20200122
  Serious: Yes (Hospitalization)
  Sender: FDA-Public Use
  Company Number: None

PATIENT
  Age: 85 Year
  Sex: Female
  Weight: 65.25 kg

DRUGS (6)
  1. FASLODEX [Concomitant]
     Active Substance: FULVESTRANT
  2. LABETALOL [Concomitant]
     Active Substance: LABETALOL\LABETALOL HYDROCHLORIDE
  3. IBRANCE [Suspect]
     Active Substance: PALBOCICLIB
     Indication: BREAST CANCER FEMALE
     Dosage: ?          OTHER FREQUENCY:DAILYX3WKS, 1 OFF;?
     Route: 048
     Dates: start: 20181211
  4. SYNTHROID [Concomitant]
     Active Substance: LEVOTHYROXINE SODIUM
  5. ASPIRIN. [Concomitant]
     Active Substance: ASPIRIN
  6. HYDRALAZINE [Concomitant]
     Active Substance: HYDRALAZINE HYDROCHLORIDE

REACTIONS (1)
  - Pyrexia [None]

NARRATIVE: CASE EVENT DATE: 20191202
